FAERS Safety Report 6623994-2 (Version None)
Quarter: 2010Q1

REPORT INFORMATION
  Report Type: 
  Country: None (occurrence: None)
  Receive Date: 20100305
  Receipt Date: 20100216
  Transmission Date: 20100710
  Serious: Yes (Other)
  Sender: FDA-Public Use
  Company Number: FR0201000037

PATIENT
  Age: 43 Year
  Sex: Male

DRUGS (1)
  1. FLUOROURACIL [Suspect]
     Indication: GASTRIC CANCER

REACTIONS (3)
  - BLOOD BILIRUBIN INCREASED [None]
  - HEPATITIS B DNA INCREASED [None]
  - INTERNATIONAL NORMALISED RATIO INCREASED [None]
